FAERS Safety Report 4382257-9 (Version None)
Quarter: 2004Q2

REPORT INFORMATION
  Report Type: 
  Country: None (occurrence: None)
  Receive Date: 20040616
  Receipt Date: 20040602
  Transmission Date: 20050107
  Serious: No
  Sender: FDA-Public Use
  Company Number: A01200402598

PATIENT
  Age: 76 Year
  Sex: Male

DRUGS (7)
  1. STILNOCT - (ZOLPIDEM TARTRATE) - TABLET - 10 MG [Suspect]
     Indication: INSOMNIA
     Dosage: 10 MG ONCE
     Route: 048
     Dates: start: 20040310, end: 20040310
  2. BETAMETHASONE [Concomitant]
  3. SULBUTAMOL (SALBUTAMOL) [Concomitant]
  4. FUROSEMIDE [Concomitant]
  5. ACETYLCYSTEINE [Concomitant]
  6. FILGRASTIM [Concomitant]
  7. ALTEPLAS+L-ARGININE+PHOSPHORICACID+POLYSOBATE [Concomitant]

REACTIONS (2)
  - APNOEA [None]
  - CONFUSIONAL STATE [None]
